FAERS Safety Report 11707553 (Version 1)
Quarter: 2015Q4

REPORT INFORMATION
  Report Type: Spontaneous
  Country: US (occurrence: US)
  Receive Date: 20151106
  Receipt Date: 20151106
  Transmission Date: 20160304
  Serious: Yes (Other)
  Sender: FDA-Public Use
  Company Number: US-FRI-1000080835

PATIENT
  Sex: Female

DRUGS (1)
  1. ARMOUR THYROID [Suspect]
     Active Substance: THYROID, PORCINE\THYROID, UNSPECIFIED
     Dosage: 90 MG

REACTIONS (11)
  - Systemic lupus erythematosus [Unknown]
  - Bronchitis [Recovered/Resolved]
  - Kidney infection [Recovered/Resolved]
  - Influenza [Recovered/Resolved]
  - Blood cholesterol increased [Unknown]
  - Pharyngitis [Recovered/Resolved]
  - Ear infection [Recovered/Resolved]
  - Cystitis [Recovered/Resolved]
  - Blood glucose increased [Unknown]
  - Hypertension [Unknown]
  - Fatigue [Unknown]

NARRATIVE: CASE EVENT DATE: 2009
